FAERS Safety Report 7134829-6 (Version None)
Quarter: 2010Q4

REPORT INFORMATION
  Report Type: 
  Country: None (occurrence: None)
  Receive Date: 20101203
  Receipt Date: 20101128
  Transmission Date: 20110411
  Serious: Yes (Other)
  Sender: FDA-Public Use
  Company Number: IT-JNJFOC-20101200052

PATIENT
  Age: 42 Year
  Sex: Female

DRUGS (5)
  1. RISPERDAL [Suspect]
     Indication: ILL-DEFINED DISORDER
     Route: 048
  2. MUTABON [Suspect]
     Indication: ILL-DEFINED DISORDER
  3. BENTELAN [Suspect]
     Indication: ILL-DEFINED DISORDER
     Route: 048
  4. LENDORMIN [Suspect]
     Indication: ILL-DEFINED DISORDER
     Route: 048
  5. GLADIO [Suspect]
     Indication: ILL-DEFINED DISORDER
     Route: 048

REACTIONS (2)
  - SELF INJURIOUS BEHAVIOUR [None]
  - SLUGGISHNESS [None]
